FAERS Safety Report 4342748-3 (Version None)
Quarter: 2004Q2

REPORT INFORMATION
  Report Type: 
  Country: None (occurrence: None)
  Receive Date: 20040409
  Receipt Date: 20030430
  Transmission Date: 20050107
  Serious: Yes (Hospitalization)
  Sender: FDA-Public Use
  Company Number: 03P-163-0218176-00

PATIENT
  Age: 17 Year
  Sex: Female

DRUGS (5)
  1. DEPAKOTE [Suspect]
     Indication: AGGRESSION
     Dosage: 650 MG, 1 IN 1 D, PER ORAL
     Route: 048
     Dates: start: 20010101, end: 20030401
  2. COUMADIN [Concomitant]
  3. TEMAZEPAM [Concomitant]
  4. PAROXETINE HCL [Concomitant]
  5. ABILIFY [Concomitant]

REACTIONS (3)
  - PLATELET COUNT DECREASED [None]
  - RED BLOOD CELL COUNT DECREASED [None]
  - WHITE BLOOD CELL COUNT DECREASED [None]
